FAERS Safety Report 11935681 (Version 1)
Quarter: 2016Q1

REPORT INFORMATION
  Report Type: Spontaneous
  Country: CA (occurrence: CA)
  Receive Date: 20160121
  Receipt Date: 20160121
  Transmission Date: 20160526
  Serious: Yes (Hospitalization)
  Sender: FDA-Public Use
  Company Number: CA-B.I. PHARMACEUTICALS,INC./RIDGEFIELD-2013-CN-00410CN

PATIENT
  Age: 76 Year
  Sex: Male
  Weight: 75.2 kg

DRUGS (7)
  1. ZOCOR [Concomitant]
     Active Substance: SIMVASTATIN
     Indication: PRODUCT USED FOR UNKNOWN INDICATION
     Dosage: 40 MG
     Route: 048
  2. ZYLOPRIM [Concomitant]
     Active Substance: ALLOPURINOL
     Indication: GOUT
     Dosage: 200 MG
     Route: 048
  3. NORVASC [Concomitant]
     Active Substance: AMLODIPINE BESYLATE
     Indication: PRODUCT USED FOR UNKNOWN INDICATION
     Dosage: 10 MG
     Route: 048
  4. BABY ASPIRIN [Concomitant]
     Active Substance: ASPIRIN
     Indication: PRODUCT USED FOR UNKNOWN INDICATION
     Dosage: 81 MG
     Route: 048
  5. TENORMIN [Concomitant]
     Active Substance: ATENOLOL
     Indication: PRODUCT USED FOR UNKNOWN INDICATION
     Dosage: 50 MG
     Route: 048
  6. PRADAXA [Suspect]
     Active Substance: DABIGATRAN ETEXILATE MESYLATE
     Indication: ATRIAL FIBRILLATION
     Dosage: 300 MG
     Route: 065
     Dates: start: 20120526, end: 201207
  7. INDOCID [Concomitant]
     Active Substance: INDOMETHACIN
     Indication: OSTEOARTHRITIS
     Dosage: DAILY DOSE: 50 MG ONCE DAILY AS REQUIRED
     Route: 048

REACTIONS (15)
  - Gastrointestinal haemorrhage [Recovered/Resolved]
  - Chest pain [Unknown]
  - Haematochezia [Unknown]
  - Serum ferritin decreased [Unknown]
  - Asthenia [Unknown]
  - Anaemia [Unknown]
  - Presyncope [Unknown]
  - Syncope [Unknown]
  - Hypotension [Unknown]
  - Melaena [Unknown]
  - Dyspnoea [Recovered/Resolved]
  - Dizziness [Unknown]
  - Haemoglobin decreased [Unknown]
  - Malaise [Unknown]
  - Pleural effusion [Unknown]

NARRATIVE: CASE EVENT DATE: 2012
